FAERS Safety Report 12012841 (Version 4)
Quarter: 2017Q1

REPORT INFORMATION
  Report Type: Spontaneous
  Country: JP (occurrence: JP)
  Receive Date: 20160205
  Receipt Date: 20170320
  Transmission Date: 20170428
  Serious: Yes (Death, Hospitalization)
  Sender: FDA-Public Use
  Company Number: JP-MALLINCKRODT-T201600345

PATIENT
  Age: 53 Year
  Sex: Female
  Weight: 46 kg

DRUGS (121)
  1. METHADONE [Suspect]
     Active Substance: METHADONE HYDROCHLORIDE
     Dosage: 10 MG (30 MG DAILY DOSE)
     Route: 048
     Dates: start: 20141016, end: 20141024
  2. METHADONE [Suspect]
     Active Substance: METHADONE HYDROCHLORIDE
     Dosage: 15 MG (45 MG DAILY DOSE)
     Route: 048
     Dates: start: 20141025, end: 20141027
  3. METHADONE [Suspect]
     Active Substance: METHADONE HYDROCHLORIDE
     Dosage: 20 MG (60 MG DAILY DOSE)
     Route: 048
     Dates: start: 20141027, end: 20141115
  4. METHADONE [Suspect]
     Active Substance: METHADONE HYDROCHLORIDE
     Dosage: 25 MG (75 MG DAILY DOSE)
     Route: 048
     Dates: start: 20141115, end: 20141118
  5. OXIFAST [Concomitant]
     Active Substance: OXYCODONE
     Indication: ANALGESIC THERAPY
     Dosage: 20 MG, PRN
     Route: 051
     Dates: start: 20140611
  6. FUROSEMIDE. [Concomitant]
     Active Substance: FUROSEMIDE
     Dosage: 20 MG
     Route: 048
     Dates: start: 20140528, end: 20140605
  7. MIDAZOLAM [Concomitant]
     Active Substance: MIDAZOLAM HYDROCHLORIDE
     Dosage: 40 MG
     Route: 051
     Dates: start: 20141014, end: 20150107
  8. KETALAR [Concomitant]
     Active Substance: KETAMINE HYDROCHLORIDE
     Dosage: 360 MG
     Route: 042
     Dates: start: 20141031, end: 20141031
  9. TRAMAL [Concomitant]
     Active Substance: TRAMADOL
     Dosage: 200 MG
     Route: 048
     Dates: start: 20140716, end: 20141008
  10. ALLOID [Concomitant]
     Dosage: 60 ML
     Route: 048
     Dates: start: 20140702, end: 20141008
  11. L CARTIN FF [Concomitant]
     Active Substance: LEVOCARNITINE
     Dosage: 1000 MG
     Route: 042
     Dates: start: 20140605, end: 20140704
  12. ELNEOPA NO.2 [Concomitant]
     Active Substance: AMINO ACIDS\CARBOHYDRATES\ELECTROLYTES NOS\VITAMINS
     Dosage: 800 ML
     Route: 051
     Dates: start: 20141221, end: 20150120
  13. SALTNIN [Concomitant]
     Dosage: 20 ML
     Route: 051
     Dates: start: 20150109, end: 20150120
  14. VITAJECT [Concomitant]
     Active Substance: CYANOCOBALAMIN\PYRIDOXAMINE HYDROCHLORIDE\THIAMINE HYDROCHLORIDE
     Dosage: 1 DF
     Route: 051
     Dates: start: 20150109, end: 20150120
  15. OXIFAST [Concomitant]
     Active Substance: OXYCODONE
     Dosage: 200 MG
     Route: 051
     Dates: start: 20140604, end: 20140605
  16. OXIFAST [Concomitant]
     Active Substance: OXYCODONE
     Dosage: 400 MG
     Route: 051
     Dates: start: 20140707, end: 20140722
  17. FENTOS [Concomitant]
     Active Substance: FENTANYL
     Dosage: 24 MG
     Route: 062
     Dates: start: 20141028, end: 20150120
  18. ALOSENN [Concomitant]
     Active Substance: SENNA LEAF
     Dosage: 1.5 MG
     Route: 048
     Dates: end: 20140605
  19. MUCOSTA [Concomitant]
     Active Substance: REBAMIPIDE
     Dosage: 300 MG
     Route: 048
     Dates: start: 20140715, end: 20141008
  20. FLUNITRAZEPAM [Concomitant]
     Active Substance: FLUNITRAZEPAM
     Dosage: 1 MG
     Route: 048
     Dates: start: 20140616, end: 20141008
  21. LYRICA [Concomitant]
     Active Substance: PREGABALIN
     Dosage: 150 MG
     Route: 048
     Dates: start: 20140623, end: 20140627
  22. LYRICA [Concomitant]
     Active Substance: PREGABALIN
     Dosage: 300 MG
     Route: 048
     Dates: start: 20141125, end: 20150119
  23. BFLUID [Concomitant]
     Active Substance: AMINO ACIDS\DEXTROSE\ELECTROLYTES NOS\VITAMINS
     Dosage: 500 ML
     Route: 051
     Dates: start: 20140516, end: 20140516
  24. BFLUID [Concomitant]
     Active Substance: AMINO ACIDS\DEXTROSE\ELECTROLYTES NOS\VITAMINS
     Dosage: 1000 ML
     Route: 051
     Dates: start: 20140826, end: 20140827
  25. LINTON [Concomitant]
     Active Substance: HALOPERIDOL
     Dosage: 5 MG
     Route: 051
     Dates: start: 20141010, end: 20150115
  26. MEXILETINE HYDROCHLORIDE. [Concomitant]
     Active Substance: MEXILETINE HYDROCHLORIDE
     Indication: ANALGESIC THERAPY
     Dosage: 300 MG
     Route: 048
     Dates: start: 20140627, end: 20141008
  27. KETALAR [Concomitant]
     Active Substance: KETAMINE HYDROCHLORIDE
     Dosage: 50 MG
     Route: 051
     Dates: start: 20140806, end: 20140808
  28. KETALAR [Concomitant]
     Active Substance: KETAMINE HYDROCHLORIDE
     Dosage: 120 MG
     Route: 042
     Dates: start: 20141009, end: 20141010
  29. KETALAR [Concomitant]
     Active Substance: KETAMINE HYDROCHLORIDE
     Dosage: 240 MG
     Route: 042
     Dates: start: 20141118, end: 20141119
  30. ELNEOPA NO.1 [Concomitant]
     Dosage: 1000 ML
     Route: 051
     Dates: start: 20141008, end: 20141024
  31. ENEVO [Concomitant]
     Dosage: 1 DF
     Route: 048
     Dates: start: 20140630, end: 20141008
  32. L CARTIN FF [Concomitant]
     Active Substance: LEVOCARNITINE
     Dosage: 1000 MG
     Route: 042
     Dates: start: 20141008, end: 20141024
  33. CARNITINE CHLORIDE [Concomitant]
     Dosage: 900 MG
     Route: 048
     Dates: start: 20140908, end: 20141008
  34. FINIBAX [Concomitant]
     Active Substance: DORIPENEM MONOHYDRATE
     Dosage: 1.0 G
     Route: 042
     Dates: start: 20141219, end: 20141223
  35. METHADONE [Suspect]
     Active Substance: METHADONE HYDROCHLORIDE
     Dosage: 10 MG (20 MG DAILY DOSE)
     Route: 048
     Dates: start: 20140714, end: 20140716
  36. METHADONE [Suspect]
     Active Substance: METHADONE HYDROCHLORIDE
     Dosage: 20 MG (60 MG DAILY DOSE)
     Route: 048
     Dates: start: 20140730, end: 20140805
  37. METHADONE [Suspect]
     Active Substance: METHADONE HYDROCHLORIDE
     Dosage: 25 MG (75 MG DAILY DOSE)
     Route: 048
     Dates: start: 20140806, end: 20140811
  38. OXIFAST [Concomitant]
     Active Substance: OXYCODONE
     Dosage: 450 MG
     Route: 051
     Dates: start: 20140606, end: 20140606
  39. RIVOTRIL [Concomitant]
     Active Substance: CLONAZEPAM
     Indication: ANALGESIC THERAPY
     Dosage: 1.0 MG
     Route: 048
     Dates: end: 20140605
  40. BFLUID [Concomitant]
     Active Substance: AMINO ACIDS\DEXTROSE\ELECTROLYTES NOS\VITAMINS
     Dosage: 500 ML
     Route: 051
     Dates: start: 20140604, end: 20140604
  41. MIDAZOLAM [Concomitant]
     Active Substance: MIDAZOLAM HYDROCHLORIDE
     Dosage: 20 MG
     Route: 051
     Dates: start: 20141010, end: 20141011
  42. RANITIDINE. [Concomitant]
     Active Substance: RANITIDINE
     Dosage: 100 MG
     Route: 051
     Dates: start: 20140903, end: 20140909
  43. RANITIDINE. [Concomitant]
     Active Substance: RANITIDINE
     Dosage: 100 MG
     Route: 051
     Dates: start: 20141008, end: 20141024
  44. KETALAR [Concomitant]
     Active Substance: KETAMINE HYDROCHLORIDE
     Dosage: 50 MG
     Route: 051
     Dates: start: 20140627, end: 20140629
  45. KETALAR [Concomitant]
     Active Substance: KETAMINE HYDROCHLORIDE
     Dosage: 240 MG
     Route: 042
     Dates: start: 20150113, end: 20150113
  46. LACTEC [Concomitant]
     Active Substance: CALCIUM CHLORIDE ANHYDROUS\POTASSIUM CHLORIDE\SODIUM CHLORIDE\SODIUM LACTATE
     Dosage: 500 ML
     Route: 051
     Dates: start: 20140604, end: 20140604
  47. ELNEOPA NO.1 [Concomitant]
     Dosage: 1000 ML
     Route: 051
     Dates: start: 20140605, end: 20140904
  48. PHYSIO 35 [Concomitant]
     Active Substance: ELECTROLYTES NOS
     Dosage: 500 ML
     Route: 051
     Dates: start: 20140901, end: 20140905
  49. AMINOLEBAN [Concomitant]
     Active Substance: AMINO ACIDS
     Dosage: 200 ML
     Route: 042
     Dates: start: 20150109, end: 20150120
  50. HICALIQ RF [Concomitant]
     Active Substance: CALCIUM GLUCONATE\DEXTROSE\MAGNESIUM SULFATE\POTASSIUM ACETATE\POTASSIUM PHOSPHATE, DIBASIC\ZINC SULFATE
     Dosage: 250 ML
     Route: 051
     Dates: start: 20140903, end: 20140909
  51. ELNEOPA NO.2 [Concomitant]
     Active Substance: AMINO ACIDS\CARBOHYDRATES\ELECTROLYTES NOS\VITAMINS
     Dosage: 1000 ML
     Route: 051
     Dates: start: 20141009, end: 20141220
  52. METHADONE [Suspect]
     Active Substance: METHADONE HYDROCHLORIDE
     Indication: CANCER PAIN
     Dosage: 5 MG (15 MG DAILY DOSE)
     Route: 048
     Dates: start: 20140514, end: 20140528
  53. METHADONE [Suspect]
     Active Substance: METHADONE HYDROCHLORIDE
     Dosage: 10 MG (30 MG DAILY DOSE)
     Route: 048
     Dates: start: 20140717, end: 20140722
  54. FENTANYL CITRATE. [Concomitant]
     Active Substance: FENTANYL CITRATE
     Dosage: 0.3 MG, PRN
     Route: 051
     Dates: start: 20140516, end: 20140516
  55. OXIFAST [Concomitant]
     Active Substance: OXYCODONE
     Dosage: 350-450 MG
     Route: 051
     Dates: start: 20141009, end: 20150120
  56. FENTOS [Concomitant]
     Active Substance: FENTANYL
     Dosage: 22 MG
     Route: 062
     Dates: start: 20141016, end: 20141027
  57. RIVOTRIL [Concomitant]
     Active Substance: CLONAZEPAM
     Dosage: 1 MG
     Route: 048
     Dates: start: 20140623, end: 20140627
  58. BFLUID [Concomitant]
     Active Substance: AMINO ACIDS\DEXTROSE\ELECTROLYTES NOS\VITAMINS
     Dosage: 500 ML
     Route: 051
     Dates: start: 20140828, end: 20140828
  59. MIDAZOLAM [Concomitant]
     Active Substance: MIDAZOLAM HYDROCHLORIDE
     Dosage: 10 MG
     Route: 051
     Dates: start: 20140604, end: 20140614
  60. MIDAZOLAM [Concomitant]
     Active Substance: MIDAZOLAM HYDROCHLORIDE
     Dosage: 30 MG
     Route: 051
     Dates: start: 20141012, end: 20141013
  61. OLIVES [Concomitant]
     Active Substance: LIDOCAINE HYDROCHLORIDE
     Dosage: 480 MG
     Route: 051
     Dates: start: 20141009, end: 20141013
  62. GASMOTIN [Concomitant]
     Active Substance: MOSAPRIDE CITRATE
     Dosage: 15 MG
     Route: 048
     Dates: start: 20140623, end: 20141008
  63. KETALAR [Concomitant]
     Active Substance: KETAMINE HYDROCHLORIDE
     Dosage: 480 MG
     Route: 042
     Dates: start: 20141101, end: 20141116
  64. ATARAX-P [Concomitant]
     Active Substance: HYDROXYZINE HYDROCHLORIDE
     Dosage: 25 MG
     Route: 051
     Dates: start: 20140604, end: 20140604
  65. DAIVITAMIX [Concomitant]
     Dosage: 2 ML
     Route: 051
     Dates: start: 20140826, end: 20140827
  66. PANTOL [Concomitant]
     Active Substance: DEXPANTHENOL
     Dosage: 500 MG
     Route: 051
     Dates: start: 20141224, end: 20150120
  67. METHADONE [Suspect]
     Active Substance: METHADONE HYDROCHLORIDE
     Dosage: 10 MG (30 MG DAILY DOSE)
     Route: 048
     Dates: start: 20140528, end: 20140603
  68. METHADONE [Suspect]
     Active Substance: METHADONE HYDROCHLORIDE
     Dosage: 5 MG (15 MG DAILY DOSE)
     Route: 048
     Dates: start: 20140707, end: 20140714
  69. METHADONE [Suspect]
     Active Substance: METHADONE HYDROCHLORIDE
     Dosage: 30 MG (90 MG DAILY DOSE)
     Route: 048
     Dates: start: 20140812, end: 20141009
  70. FENTANYL CITRATE. [Concomitant]
     Active Substance: FENTANYL CITRATE
     Indication: ANALGESIC THERAPY
     Dosage: 400 - 800 MCG, PRN
     Route: 002
     Dates: start: 20140513
  71. FENTOS [Concomitant]
     Active Substance: FENTANYL
     Indication: ANALGESIC THERAPY
     Dosage: 18 MG
     Route: 062
     Dates: end: 20141015
  72. TAKEPRON [Concomitant]
     Active Substance: LANSOPRAZOLE
     Dosage: 60 MG
     Route: 042
     Dates: start: 20140604, end: 20140606
  73. BAYASPIRIN [Concomitant]
     Active Substance: ASPIRIN
     Dosage: 200 MG
     Route: 048
     Dates: end: 20140605
  74. PAMILCON [Concomitant]
     Active Substance: GLYBURIDE
     Dosage: 2.5 MG
     Route: 048
     Dates: end: 20140605
  75. MUCOSTA [Concomitant]
     Active Substance: REBAMIPIDE
     Dosage: 300 MG
     Route: 048
     Dates: end: 20140605
  76. FLUNITRAZEPAM [Concomitant]
     Active Substance: FLUNITRAZEPAM
     Dosage: 1 MG
     Route: 048
     Dates: end: 20140605
  77. LYRICA [Concomitant]
     Active Substance: PREGABALIN
     Dosage: 300 MG
     Route: 048
     Dates: start: 20140627, end: 20141008
  78. MIDAZOLAM [Concomitant]
     Active Substance: MIDAZOLAM HYDROCHLORIDE
     Dosage: 10 MG
     Route: 051
     Dates: start: 20150108, end: 20150115
  79. OLIVES [Concomitant]
     Active Substance: LIDOCAINE HYDROCHLORIDE
     Dosage: 750 MG
     Route: 051
     Dates: start: 20140607, end: 20140622
  80. OLIVES [Concomitant]
     Active Substance: LIDOCAINE HYDROCHLORIDE
     Dosage: 960 MG
     Route: 051
     Dates: start: 20141014, end: 20141023
  81. OLIVES [Concomitant]
     Active Substance: LIDOCAINE HYDROCHLORIDE
     Dosage: 720 MG
     Route: 051
     Dates: start: 20141024, end: 20141025
  82. KETALAR [Concomitant]
     Active Substance: KETAMINE HYDROCHLORIDE
     Dosage: 100 MG
     Route: 051
     Dates: start: 20140630, end: 20140805
  83. KETALAR [Concomitant]
     Active Substance: KETAMINE HYDROCHLORIDE
     Dosage: 360 MG
     Route: 042
     Dates: start: 20141011, end: 20141011
  84. KETALAR [Concomitant]
     Active Substance: KETAMINE HYDROCHLORIDE
     Dosage: 360 MG
     Route: 042
     Dates: start: 20141117, end: 20141117
  85. SANDOSTATIN [Concomitant]
     Active Substance: OCTREOTIDE ACETATE
     Dosage: 300 ?G
     Route: 051
     Dates: start: 20141014, end: 20141120
  86. LASIX [Concomitant]
     Active Substance: FUROSEMIDE
     Dosage: 20 MG
     Route: 051
     Dates: start: 20141212, end: 20150120
  87. ROCEPHIN [Concomitant]
     Active Substance: CEFTRIAXONE SODIUM
     Dosage: 1 G
     Route: 042
     Dates: start: 20141017, end: 20141024
  88. ELEMENMIC [Concomitant]
     Active Substance: CUPRIC SULFATE\FERRIC CHLORIDE\MANGANESE CHLORIDE\POTASSIUM IODIDE\ZINC SULFATE
     Dosage: 2 ML
     Route: 051
     Dates: start: 20150109, end: 20150120
  89. METHADONE [Suspect]
     Active Substance: METHADONE HYDROCHLORIDE
     Dosage: 20 MG (40 MG DAILY DOSE)
     Route: 048
     Dates: start: 20140723, end: 20140724
  90. METHADONE [Suspect]
     Active Substance: METHADONE HYDROCHLORIDE
     Dosage: 15 MG (45 MG DAILY DOSE)
     Route: 048
     Dates: start: 20140725, end: 20140729
  91. OXIFAST [Concomitant]
     Active Substance: OXYCODONE
     Dosage: 370 MG
     Route: 051
     Dates: start: 20140723, end: 20140730
  92. OXIFAST [Concomitant]
     Active Substance: OXYCODONE
     Dosage: 350 MG
     Route: 051
     Dates: start: 20140731, end: 20140825
  93. ACOFIDE [Concomitant]
     Active Substance: ACOTIAMIDE HYDROCHLORIDE
     Dosage: 300 MG
     Route: 048
     Dates: end: 20140605
  94. OLIVES [Concomitant]
     Active Substance: LIDOCAINE HYDROCHLORIDE
     Dosage: 500 MG
     Route: 051
     Dates: start: 20140623, end: 20140627
  95. KETALAR [Concomitant]
     Active Substance: KETAMINE HYDROCHLORIDE
     Indication: ANALGESIC THERAPY
     Dosage: 50 MG
     Route: 051
     Dates: start: 20140605, end: 20140606
  96. KETALAR [Concomitant]
     Active Substance: KETAMINE HYDROCHLORIDE
     Dosage: 240 MG
     Route: 042
     Dates: start: 20141030, end: 20141030
  97. KETALAR [Concomitant]
     Active Substance: KETAMINE HYDROCHLORIDE
     Dosage: 480 MG
     Route: 042
     Dates: start: 20150114, end: 20150120
  98. TRAMAL [Concomitant]
     Active Substance: TRAMADOL
     Indication: ANALGESIC THERAPY
     Dosage: 100 MG
     Route: 048
     Dates: start: 20140710, end: 20140716
  99. PARIET [Concomitant]
     Active Substance: RABEPRAZOLE SODIUM
     Dosage: 10 MG
     Route: 048
     Dates: start: 20140715, end: 20141008
  100. PARIET [Concomitant]
     Active Substance: RABEPRAZOLE SODIUM
     Dosage: 10 MG
     Route: 048
     Dates: start: 20141027, end: 20150119
  101. L CARTIN FF [Concomitant]
     Active Substance: LEVOCARNITINE
     Dosage: 200 MG
     Route: 042
     Dates: start: 20140901, end: 20140909
  102. OXIFAST [Concomitant]
     Active Substance: OXYCODONE
     Dosage: 300 MG
     Route: 051
     Dates: start: 20140825, end: 20141008
  103. TAKEPRON [Concomitant]
     Active Substance: LANSOPRAZOLE
     Dosage: 15 MG
     Route: 048
     Dates: start: 20140615, end: 20140714
  104. FUROSEMIDE. [Concomitant]
     Active Substance: FUROSEMIDE
     Dosage: 20 MG
     Route: 048
     Dates: start: 20140630, end: 20141008
  105. LINTON [Concomitant]
     Active Substance: HALOPERIDOL
     Dosage: 5 MG
     Route: 051
     Dates: start: 20140604, end: 20140614
  106. KETALAR [Concomitant]
     Active Substance: KETAMINE HYDROCHLORIDE
     Dosage: 100 MG
     Route: 051
     Dates: start: 20140607, end: 20140626
  107. HICALIQ RF [Concomitant]
     Active Substance: CALCIUM GLUCONATE\DEXTROSE\MAGNESIUM SULFATE\POTASSIUM ACETATE\POTASSIUM PHOSPHATE, DIBASIC\ZINC SULFATE
     Dosage: 250 ML
     Route: 051
     Dates: start: 20150109, end: 20150120
  108. LACTULOSE. [Concomitant]
     Active Substance: LACTULOSE
     Dosage: 60 ML
     Route: 048
     Dates: start: 20140908, end: 20140908
  109. LASIX [Concomitant]
     Active Substance: FUROSEMIDE
     Dosage: 10 MG
     Route: 051
     Dates: start: 20141013, end: 20141211
  110. METHADONE [Suspect]
     Active Substance: METHADONE HYDROCHLORIDE
     Dosage: 30 MG (90 MG DAILY DOSE)
     Route: 048
     Dates: start: 20141118, end: 20150119
  111. OXINORM [Concomitant]
     Active Substance: OXYCODONE HYDROCHLORIDE
     Indication: ANALGESIC THERAPY
     Dosage: 40 MG, PRN
     Route: 048
     Dates: start: 20140513
  112. TAKEPRON [Concomitant]
     Active Substance: LANSOPRAZOLE
     Dosage: 15 MG
     Route: 048
     Dates: end: 20140605
  113. LYRICA [Concomitant]
     Active Substance: PREGABALIN
     Indication: ANALGESIC THERAPY
     Dosage: 150 MG
     Route: 048
     Dates: end: 20140605
  114. OLIVES [Concomitant]
     Active Substance: LIDOCAINE HYDROCHLORIDE
     Indication: ANALGESIC THERAPY
     Dosage: 500 MG
     Route: 051
     Dates: start: 20140605, end: 20140606
  115. RANITIDINE. [Concomitant]
     Active Substance: RANITIDINE
     Dosage: 100 MG
     Route: 051
     Dates: start: 20140607, end: 20140614
  116. KETALAR [Concomitant]
     Active Substance: KETAMINE HYDROCHLORIDE
     Dosage: 480 MG
     Route: 042
     Dates: start: 20141012, end: 20141028
  117. KETALAR [Concomitant]
     Active Substance: KETAMINE HYDROCHLORIDE
     Dosage: 360 MG
     Route: 042
     Dates: start: 20141029, end: 20141029
  118. PARIET [Concomitant]
     Active Substance: RABEPRAZOLE SODIUM
     Dosage: 10 MG
     Route: 048
     Dates: start: 20141003, end: 20141008
  119. L CARTIN FF [Concomitant]
     Active Substance: LEVOCARNITINE
     Dosage: 1000 MG
     Route: 042
     Dates: start: 20150113, end: 20150120
  120. AMINOLEBAN [Concomitant]
     Active Substance: AMINO ACIDS
     Dosage: 200 ML
     Route: 042
     Dates: start: 20140901, end: 20140909
  121. HICORT [Concomitant]
     Active Substance: BETAMETHASONE SODIUM PHOSPHATE
     Dosage: 2 G
     Route: 051
     Dates: start: 20150109, end: 20150120

REACTIONS (4)
  - Asthma [Recovering/Resolving]
  - Peritonitis [Recovering/Resolving]
  - Intestinal obstruction [Recovering/Resolving]
  - Ovarian cancer [Fatal]

NARRATIVE: CASE EVENT DATE: 20140604
